FAERS Safety Report 7994823-X (Version None)
Quarter: 2011Q4

REPORT INFORMATION
  Report Type: 
  Country: None (occurrence: None)
  Receive Date: 20111220
  Receipt Date: 20111216
  Transmission Date: 20120403
  Serious: Yes (Death, Life-Threatening, Hospitalization)
  Sender: FDA-Public Use
  Company Number: JP-B.I. PHARMACEUTICALS,INC./RIDGEFIELD-2011-BP-11154NB

PATIENT
  Sex: Female
  Weight: 38.9 kg

DRUGS (9)
  1. DIGOXIN [Concomitant]
     Indication: ARRHYTHMIA
     Dosage: 0.125 MG
     Route: 048
     Dates: start: 20080407, end: 20110418
  2. FUROSEMIDE [Concomitant]
     Indication: CARDIAC FAILURE
     Dosage: 20 MG
     Route: 048
     Dates: start: 20080407, end: 20110418
  3. LOSARTAN POTASSIUM [Concomitant]
     Indication: HYPERTENSION
     Dosage: 50 MG
     Route: 048
     Dates: start: 20080407, end: 20110418
  4. MIGLITOL [Concomitant]
     Dosage: 150 MG
     Route: 048
  5. URSO 250 [Concomitant]
     Indication: CHRONIC HEPATITIS
     Dosage: 300 MG
     Route: 048
     Dates: start: 20080407, end: 20110418
  6. GANATON [Concomitant]
     Dosage: 150 MG
     Route: 048
     Dates: start: 20080407, end: 20110418
  7. PRADAXA [Suspect]
     Indication: ATRIAL FIBRILLATION
     Dosage: 220 MG
     Route: 048
     Dates: start: 20110405, end: 20110419
  8. BIO-THREE [Concomitant]
     Indication: GASTRITIS
     Dosage: 3 G
     Route: 048
     Dates: start: 20110407, end: 20110418
  9. DILTIAZEM HCL [Concomitant]
     Indication: ARRHYTHMIA
     Dosage: 200 MG
     Route: 048
     Dates: start: 20080407, end: 20110418

REACTIONS (8)
  - HAEMOPTYSIS [None]
  - HAEMATURIA [None]
  - EPISTAXIS [None]
  - ANAEMIA [None]
  - MELAENA [None]
  - PULMONARY ALVEOLAR HAEMORRHAGE [None]
  - RESPIRATORY FAILURE [None]
  - PNEUMONIA [None]
